FAERS Safety Report 8132096-8 (Version None)
Quarter: 2012Q1

REPORT INFORMATION
  Report Type: 
  Country: None (occurrence: None)
  Receive Date: 20120213
  Receipt Date: 20120210
  Transmission Date: 20120608
  Serious: Yes (Death, Hospitalization, Other)
  Sender: FDA-Public Use
  Company Number: JP-PFIZER INC-2011305795

PATIENT
  Age: 93 Year
  Sex: Male

DRUGS (1)
  1. ZOLOFT [Suspect]
     Dosage: 25 MG DAILY
     Route: 048

REACTIONS (2)
  - PNEUMONIA [None]
  - INAPPROPRIATE ANTIDIURETIC HORMONE SECRETION [None]
